FAERS Safety Report 11399217 (Version 1)
Quarter: 2015Q3

REPORT INFORMATION
  Report Type: Report from Study
  Country: DE (occurrence: DE)
  Receive Date: 20150820
  Receipt Date: 20150820
  Transmission Date: 20151125
  Serious: Yes (Hospitalization)
  Sender: FDA-Public Use
  Company Number: DE-SA-200911067DE

PATIENT
  Age: 47 Year
  Sex: Female
  Weight: 58.5 kg

DRUGS (4)
  1. LEVEMIR [Concomitant]
     Active Substance: INSULIN DETEMIR
     Indication: DIABETES MELLITUS
     Dosage: DOSE AS USED: VAGUE ?DAILY DOSE: 100 MLO I.E
     Route: 058
     Dates: start: 20060601
  2. DOCETAXEL. [Suspect]
     Active Substance: DOCETAXEL
     Indication: BREAST CANCER
     Route: 042
     Dates: start: 20081117, end: 20081229
  3. NOVORAPID [Concomitant]
     Active Substance: INSULIN ASPART
     Indication: DIABETES MELLITUS
     Dosage: DOSE AS USED: VAGUE ?DAILY DOSE: 100 MLO I.E
     Route: 058
     Dates: start: 20060601
  4. BERLTHYROX [Concomitant]
     Indication: HYPOTHYROIDISM
     Route: 048
     Dates: start: 20061101

REACTIONS (2)
  - Muscle spasticity [Recovered/Resolved]
  - Speech disorder [Recovered/Resolved]

NARRATIVE: CASE EVENT DATE: 20090109
